FAERS Safety Report 25735557 (Version 3)
Quarter: 2025Q3

REPORT INFORMATION
  Report Type: Spontaneous
  Country: JP (occurrence: JP)
  Receive Date: 20250828
  Receipt Date: 20250905
  Transmission Date: 20251020
  Serious: Yes (Life-Threatening, Hospitalization, Other)
  Sender: PFIZER
  Company Number: JP-PFIZER INC-PV202400157072

PATIENT
  Age: 83 Year
  Sex: Female

DRUGS (1)
  1. METHOTREXATE SODIUM [Suspect]
     Active Substance: METHOTREXATE SODIUM
     Indication: Rheumatoid arthritis
     Dosage: 6 MG, WEEKLY
     Dates: start: 2014, end: 2024

REACTIONS (2)
  - Epstein-Barr virus associated lymphoproliferative disorder [Recovering/Resolving]
  - Meningitis viral [Unknown]

NARRATIVE: CASE EVENT DATE: 20240501
